FAERS Safety Report 6022849-4 (Version None)
Quarter: 2008Q4

REPORT INFORMATION
  Report Type: 
  Country: None (occurrence: None)
  Receive Date: 20081230
  Receipt Date: 20080509
  Transmission Date: 20090506
  Serious: No
  Sender: FDA-Public Use
  Company Number: US-ABBOTT-08P-163-0451531-00

PATIENT
  Sex: Male
  Weight: 87.168 kg

DRUGS (2)
  1. OMNICEF [Suspect]
     Indication: STAPHYLOCOCCAL SKIN INFECTION
     Dosage: TWO 300 MG CAPSULES TWICE DAILY
     Route: 048
     Dates: start: 20080303, end: 20080307
  2. LEVOFLOXACIN [Concomitant]
     Indication: STAPHYLOCOCCAL INFECTION
     Route: 048
     Dates: start: 20080310, end: 20080325

REACTIONS (1)
  - RASH [None]
